FAERS Safety Report 12048598 (Version 1)
Quarter: 2016Q1

REPORT INFORMATION
  Report Type: Spontaneous
  Country: NO (occurrence: NO)
  Receive Date: 20160208
  Receipt Date: 20160208
  Transmission Date: 20160526
  Serious: Yes (Death)
  Sender: FDA-Public Use
  Company Number: PHHY2016NO013399

PATIENT
  Age: 73 Year
  Sex: Male

DRUGS (1)
  1. EBETREX [Suspect]
     Active Substance: METHOTREXATE SODIUM
     Indication: ALLERGIC GRANULOMATOUS ANGIITIS
     Dosage: 20 MG, QW
     Route: 058
     Dates: start: 200807, end: 20151123

REACTIONS (2)
  - Pancytopenia [Fatal]
  - Leukopenia [Fatal]

NARRATIVE: CASE EVENT DATE: 20151123
